FAERS Safety Report 10346327 (Version 1)
Quarter: 2014Q3

REPORT INFORMATION
  Report Type: Report from Study
  Country: US (occurrence: US)
  Receive Date: 20140728
  Receipt Date: 20140728
  Transmission Date: 20150326
  Serious: Yes (Hospitalization)
  Sender: FDA-Public Use
  Company Number: US-TAKEDA-2014MPI002000

PATIENT
  Age: 53 Year
  Sex: Male

DRUGS (10)
  1. GABAPENTIN. [Concomitant]
     Active Substance: GABAPENTIN
  2. CITALOPRAM [Concomitant]
     Active Substance: CITALOPRAM HYDROBROMIDE
  3. OXYCODONE [Concomitant]
     Active Substance: OXYCODONE
  4. FENOFIBRATE. [Concomitant]
     Active Substance: FENOFIBRATE
  5. DEXAMETHASONE. [Suspect]
     Active Substance: DEXAMETHASONE
     Indication: PLASMA CELL MYELOMA
  6. LENALIDOMIDE [Suspect]
     Active Substance: LENALIDOMIDE
     Indication: PLASMA CELL MYELOMA
  7. NABUMETONE. [Concomitant]
     Active Substance: NABUMETONE
  8. ASPIRIN. [Concomitant]
     Active Substance: ASPIRIN
  9. VELCADE [Suspect]
     Active Substance: BORTEZOMIB
     Indication: PLASMA CELL MYELOMA
  10. MOBIC [Concomitant]
     Active Substance: MELOXICAM

REACTIONS (2)
  - Musculoskeletal chest pain [Unknown]
  - Chest pain [Unknown]

NARRATIVE: CASE EVENT DATE: 20140717
